FAERS Safety Report 16900151 (Version 1)
Quarter: 2019Q4

REPORT INFORMATION
  Report Type: Spontaneous
  Country: NO (occurrence: NO)
  Receive Date: 20191009
  Receipt Date: 20191009
  Transmission Date: 20200122
  Serious: Yes (Life-Threatening, Other)
  Sender: FDA-Public Use
  Company Number: NO-GLAXOSMITHKLINE-NO2019180386

PATIENT
  Age: 47 Year
  Sex: Female
  Weight: 72 kg

DRUGS (2)
  1. ENALAPRIL + LERCANIDIPINE [Concomitant]
     Active Substance: ENALAPRIL\LERCANIDIPINE
     Indication: HYPERTENSION
     Dosage: UNK
     Route: 065
     Dates: start: 20190201
  2. VOLTAREN [Suspect]
     Active Substance: DICLOFENAC SODIUM
     Indication: FIBROMYALGIA
     Dosage: AS REQUIRED
     Route: 065
     Dates: start: 20130201, end: 20190601

REACTIONS (1)
  - Anaphylactic shock [Recovered/Resolved]

NARRATIVE: CASE EVENT DATE: 20190601
